FAERS Safety Report 25553305 (Version 1)
Quarter: 2025Q3

REPORT INFORMATION
  Report Type: Spontaneous
  Country: CN (occurrence: CN)
  Receive Date: 20250715
  Receipt Date: 20250715
  Transmission Date: 20251020
  Serious: Yes (Hospitalization)
  Sender: MERCK SHARP & DOHME LLC
  Company Number: CN-009507513-2304914

PATIENT
  Age: 0 Year
  Sex: Male
  Weight: 8.3 kg

DRUGS (1)
  1. CILASTATIN SODIUM\IMIPENEM [Suspect]
     Active Substance: CILASTATIN SODIUM\IMIPENEM
     Indication: Anti-infective therapy
     Route: 041
     Dates: start: 20250623, end: 20250627

REACTIONS (7)
  - Drug hypersensitivity [Recovering/Resolving]
  - Pyrexia [Recovering/Resolving]
  - Rash macular [Recovering/Resolving]
  - Drug eruption [Recovering/Resolving]
  - Rash morbilliform [Recovering/Resolving]
  - Angioedema [Recovering/Resolving]
  - Viral infection [Unknown]

NARRATIVE: CASE EVENT DATE: 20250601
